FAERS Safety Report 17624254 (Version 3)
Quarter: 2020Q2

REPORT INFORMATION
  Report Type: Spontaneous
  Country: US (occurrence: US)
  Receive Date: 20200403
  Receipt Date: 20200515
  Transmission Date: 20200713
  Serious: Yes (Death, Hospitalization)
  Sender: FDA-Public Use
  Company Number: US-ARRAY-2020-07668

PATIENT

DRUGS (2)
  1. MEKTOVI [Suspect]
     Active Substance: BINIMETINIB
     Indication: PRODUCT USED FOR UNKNOWN INDICATION
     Dosage: 45 MG, BID
  2. BRAFTOVI [Suspect]
     Active Substance: ENCORAFENIB
     Indication: PRODUCT USED FOR UNKNOWN INDICATION
     Dosage: 450 MG, QD

REACTIONS (10)
  - Brain oedema [Unknown]
  - Seizure [Unknown]
  - Hemiparesis [Unknown]
  - Metastases to central nervous system [Unknown]
  - Odynophagia [Unknown]
  - Atrial tachycardia [Unknown]
  - Asthenia [Unknown]
  - Essential hypertension [Unknown]
  - Disease progression [Fatal]
  - Hyponatraemia [Unknown]
